FAERS Safety Report 20368706 (Version 1)
Quarter: 2022Q1

REPORT INFORMATION
  Report Type: Spontaneous
  Country: US (occurrence: None)
  Receive Date: 20220124
  Receipt Date: 20220124
  Transmission Date: 20220423
  Serious: Yes (Hospitalization, Other)
  Sender: FDA-Public Use
  Company Number: US-Hikma Pharmaceuticals USA Inc.-US-H14001-22-00182

PATIENT
  Age: 4 Year
  Sex: Female
  Weight: 19.5 kg

DRUGS (5)
  1. DACTINOMYCIN [Suspect]
     Active Substance: DACTINOMYCIN
     Indication: Embryonal rhabdomyosarcoma
     Route: 042
     Dates: start: 20200422, end: 20200602
  2. CAMPTOSAR [Suspect]
     Active Substance: IRINOTECAN HYDROCHLORIDE
     Indication: Embryonal rhabdomyosarcoma
     Route: 042
     Dates: start: 20200422, end: 20200629
  3. TEMSIROLIMUS [Suspect]
     Active Substance: TEMSIROLIMUS
     Indication: Embryonal rhabdomyosarcoma
     Route: 042
     Dates: start: 20200422, end: 20200630
  4. VINCRISTINE SULFATE [Suspect]
     Active Substance: VINCRISTINE SULFATE
     Indication: Embryonal rhabdomyosarcoma
     Route: 042
     Dates: start: 20200422, end: 20200707
  5. CYCLOPHOSPHAMIDE [Suspect]
     Active Substance: CYCLOPHOSPHAMIDE
     Indication: Embryonal rhabdomyosarcoma
     Route: 042
     Dates: start: 20200422, end: 20200629

REACTIONS (9)
  - Venoocclusive liver disease [Recovering/Resolving]
  - Abdominal distension [Unknown]
  - Condition aggravated [Unknown]
  - Abdominal pain [Unknown]
  - Diarrhoea [Unknown]
  - Ascites [Unknown]
  - Portal hypertension [Unknown]
  - Pyrexia [Unknown]
  - Waist circumference increased [Unknown]

NARRATIVE: CASE EVENT DATE: 20200824
